FAERS Safety Report 12605526 (Version 1)
Quarter: 2016Q3

REPORT INFORMATION
  Report Type: Spontaneous
  Country: GB (occurrence: GB)
  Receive Date: 20160729
  Receipt Date: 20160729
  Transmission Date: 20161109
  Serious: Yes (Hospitalization)
  Sender: FDA-Public Use
  Company Number: GB-TEVA-679615ACC

PATIENT
  Age: 82 Year
  Sex: Female

DRUGS (11)
  1. CANDESARTAN [Concomitant]
     Active Substance: CANDESARTAN
  2. DICLOFENAC [Concomitant]
     Active Substance: DICLOFENAC
  3. ISOSORBIDE MONONITRATE. [Concomitant]
     Active Substance: ISOSORBIDE MONONITRATE
  4. ALENDRONIC ACID [Suspect]
     Active Substance: ALENDRONIC ACID
     Indication: OSTEOPOROSIS
     Route: 048
     Dates: start: 20020401, end: 20160101
  5. HYPROMELLOSE [Concomitant]
     Active Substance: HYPROMELLOSES
  6. PARACETAMOL [Concomitant]
     Active Substance: ACETAMINOPHEN
  7. QUININE SULPHATE [Concomitant]
     Active Substance: QUININE SULFATE
  8. SOTALOL. [Concomitant]
     Active Substance: SOTALOL
  9. ASPIRIN. [Concomitant]
     Active Substance: ASPIRIN
  10. GALANTAMINE. [Concomitant]
     Active Substance: GALANTAMINE
  11. SIMVASTATIN. [Concomitant]
     Active Substance: SIMVASTATIN

REACTIONS (1)
  - Atypical fracture [Not Recovered/Not Resolved]

NARRATIVE: CASE EVENT DATE: 20160711
